FAERS Safety Report 12881500 (Version 1)
Quarter: 2016Q4

REPORT INFORMATION
  Report Type: Spontaneous
  Country: US (occurrence: US)
  Receive Date: 20161025
  Receipt Date: 20161025
  Transmission Date: 20170207
  Serious: No
  Sender: FDA-Public Use
  Company Number: US-AMGEN-USASP2016137642

PATIENT
  Age: 59 Year
  Sex: Male
  Weight: 136.5 kg

DRUGS (1)
  1. ENBREL [Suspect]
     Active Substance: ETANERCEPT
     Indication: PSORIASIS
     Dosage: 50 MG, UNK
     Route: 065
     Dates: start: 201609

REACTIONS (7)
  - Influenza like illness [Unknown]
  - Nausea [Unknown]
  - Malaise [Unknown]
  - Intentional product misuse [Unknown]
  - Sluggishness [Unknown]
  - Dizziness [Unknown]
  - Feeling abnormal [Unknown]

NARRATIVE: CASE EVENT DATE: 201609
